FAERS Safety Report 25240436 (Version 1)
Quarter: 2025Q2

REPORT INFORMATION
  Report Type: Spontaneous
  Country: SE (occurrence: SE)
  Receive Date: 20250425
  Receipt Date: 20250425
  Transmission Date: 20250716
  Serious: Yes (Life-Threatening)
  Sender: MYLAN
  Company Number: None

PATIENT
  Age: 27 Year
  Sex: Male
  Weight: 116 kg

DRUGS (7)
  1. ARIPIPRAZOLE [Suspect]
     Active Substance: ARIPIPRAZOLE
     Indication: Bipolar disorder
     Dosage: 2 DOSAGE FORM, QD (2 TABLETS IN THE MORNING )
     Dates: start: 20250307, end: 20250331
  2. OLANZAPINE [Suspect]
     Active Substance: OLANZAPINE
     Indication: Bipolar disorder
     Dosage: 15 MILLIGRAM, QD
     Dates: start: 20250226, end: 20250331
  3. OLANZAPINE [Suspect]
     Active Substance: OLANZAPINE
     Dates: start: 20250226, end: 20250331
  4. PERPHENAZINE DECANOATE [Suspect]
     Active Substance: PERPHENAZINE DECANOATE
     Indication: Bipolar disorder
     Dosage: 1 MILLILITER, Q3W (1 ML EVERY THREE WEEKS INTRAMUSCULARLY  )
     Dates: start: 20210430, end: 20250331
  5. PROPIOMAZINE [Suspect]
     Active Substance: PROPIOMAZINE
     Indication: Sleep disorder
     Dosage: 2 DOSAGE FORM, QD (TWO FOR THE EVENING) (50 MG, QD)
     Dates: start: 20250227, end: 20250331
  6. LEVOMEPROMAZINE [Suspect]
     Active Substance: LEVOMEPROMAZINE
     Indication: Psychotic symptom
     Dates: start: 20250325, end: 20250331
  7. LEVOMEPROMAZINE [Suspect]
     Active Substance: LEVOMEPROMAZINE
     Indication: Agitation

REACTIONS (5)
  - Conjunctival hyperaemia [Unknown]
  - Abdominal pain [Unknown]
  - Miosis [Unknown]
  - Neuroleptic malignant syndrome [Recovering/Resolving]
  - Constipation [Unknown]

NARRATIVE: CASE EVENT DATE: 20250101
